FAERS Safety Report 6184765-7 (Version None)
Quarter: 2009Q2

REPORT INFORMATION
  Report Type: 
  Country: None (occurrence: None)
  Receive Date: 20090508
  Receipt Date: 20090430
  Transmission Date: 20091009
  Serious: Yes (Other)
  Sender: FDA-Public Use
  Company Number: PHHY2009BR11357

PATIENT
  Sex: Female

DRUGS (5)
  1. EXELON [Suspect]
     Indication: DEMENTIA ALZHEIMER'S TYPE
     Route: 048
  2. EXELON [Suspect]
     Dosage: 3 ML, BID
     Route: 048
  3. RISPERIDONE [Concomitant]
  4. VENLAFAXINE HYDROCHLORIDE [Concomitant]
     Indication: DEPRESSION
     Dosage: 1 TABLET
     Route: 048
  5. RIVOTRIL [Concomitant]
     Indication: SLEEP DISORDER
     Dosage: 1 TABLET AT NIGHT
     Route: 048

REACTIONS (11)
  - ABNORMAL BEHAVIOUR [None]
  - ACTIVITIES OF DAILY LIVING IMPAIRED [None]
  - AGGRESSION [None]
  - ARRHYTHMIA [None]
  - BRONCHOPNEUMONIA [None]
  - EUPHORIC MOOD [None]
  - FALL [None]
  - HYPERPHAGIA [None]
  - PYREXIA [None]
  - REPETITIVE SPEECH [None]
  - WEIGHT FLUCTUATION [None]
